FAERS Safety Report 14265512 (Version 2)
Quarter: 2018Q1

REPORT INFORMATION
  Report Type: Report from Study
  Country: US (occurrence: US)
  Receive Date: 20171208
  Receipt Date: 20180315
  Transmission Date: 20180508
  Serious: No
  Sender: FDA-Public Use
  Company Number: US-ALEXION PHARMACEUTICALS INC.-A201712998

PATIENT
  Age: 34 Year
  Sex: Female

DRUGS (3)
  1. SOLIRIS [Suspect]
     Active Substance: ECULIZUMAB
     Dosage: 1200 MG, Q2W
     Route: 042
     Dates: start: 20170510, end: 20180215
  2. SOLIRIS [Suspect]
     Active Substance: ECULIZUMAB
     Dosage: 1200 MG, Q2W
     Route: 042
     Dates: start: 20170512, end: 20171109
  3. SOLIRIS [Suspect]
     Active Substance: ECULIZUMAB
     Indication: ATYPICAL HAEMOLYTIC URAEMIC SYNDROME
     Dosage: UNK
     Route: 065

REACTIONS (4)
  - Haemoglobin decreased [Unknown]
  - Blood creatinine increased [Unknown]
  - Haematocrit decreased [Unknown]
  - Blood urea increased [Unknown]

NARRATIVE: CASE EVENT DATE: 20170831
